FAERS Safety Report 8776447 (Version 2)
Quarter: 2012Q4

REPORT INFORMATION
  Report Type: Report from Study
  Country: US (occurrence: US)
  Receive Date: 20120910
  Receipt Date: 20120926
  Transmission Date: 20130627
  Serious: Yes (Hospitalization, Other)
  Sender: FDA-Public Use
  Company Number: US-JNJFOC-20120901759

PATIENT
  Age: 49 None
  Sex: Female

DRUGS (20)
  1. REMICADE [Suspect]
     Indication: RHEUMATOID ARTHRITIS
     Route: 042
     Dates: start: 20120830
  2. REMICADE [Suspect]
     Indication: RHEUMATOID ARTHRITIS
     Route: 042
     Dates: start: 20120815
  3. REMICADE [Suspect]
     Indication: RHEUMATOID ARTHRITIS
     Route: 042
     Dates: start: 2006, end: 2008
  4. CYCLOBENZAPRINE [Suspect]
     Indication: PAIN
     Route: 048
     Dates: start: 20120830
  5. HYDROCODONE [Suspect]
     Indication: PAIN
     Route: 048
     Dates: start: 20120830
  6. MOBIC [Suspect]
     Indication: PAIN
     Route: 048
     Dates: start: 20120830
  7. ALLEGRA [Concomitant]
     Indication: MULTIPLE ALLERGIES
     Route: 048
  8. NEURONTIN [Concomitant]
     Indication: RHEUMATOID ARTHRITIS
     Route: 048
  9. LEVOTHROID [Concomitant]
     Indication: THYROID DISORDER
     Route: 048
  10. CELEXA [Concomitant]
     Indication: DEPRESSION
     Route: 048
  11. SOTALOL [Concomitant]
     Indication: ATRIAL FIBRILLATION
     Route: 048
  12. WARFARIN [Concomitant]
     Indication: ANTICOAGULANT THERAPY
     Dosage: once every wednesday, friday, saturday
     Route: 048
  13. WARFARIN [Concomitant]
     Indication: ANTICOAGULANT THERAPY
     Dosage: once every monday, tuesday and thursday
     Route: 048
  14. ARAVA [Concomitant]
     Indication: ARTHRITIS
     Route: 048
  15. PLAQUENIL [Concomitant]
     Indication: RHEUMATOID ARTHRITIS
     Route: 048
  16. COZAAR [Concomitant]
     Indication: CARDIAC DISORDER
     Route: 048
  17. SPORANOX [Concomitant]
     Indication: PRODUCT USED FOR UNKNOWN INDICATION
     Route: 048
  18. QVAR [Concomitant]
     Indication: CHRONIC OBSTRUCTIVE PULMONARY DISEASE
     Route: 065
  19. SPIRONO [Concomitant]
     Indication: SWELLING
     Route: 048
  20. HYDROCHLOROTHIAZIDE [Concomitant]
     Indication: BLOOD PRESSURE
     Route: 048

REACTIONS (17)
  - Thyroid cancer [Recovered/Resolved]
  - Abnormal loss of weight [Not Recovered/Not Resolved]
  - Arthropathy [Recovering/Resolving]
  - Arthritis [Not Recovered/Not Resolved]
  - Ligament sprain [Unknown]
  - Nausea [Recovering/Resolving]
  - Incontinence [Not Recovered/Not Resolved]
  - Blood potassium decreased [Unknown]
  - Vomiting [Recovered/Resolved]
  - Infusion related reaction [Not Recovered/Not Resolved]
  - Oedema peripheral [Not Recovered/Not Resolved]
  - Headache [Recovered/Resolved]
  - Decreased appetite [Not Recovered/Not Resolved]
  - Feeling abnormal [Not Recovered/Not Resolved]
  - Stomatitis [Not Recovered/Not Resolved]
  - Erythema [Not Recovered/Not Resolved]
  - Rheumatoid arthritis [Not Recovered/Not Resolved]
